FAERS Safety Report 13587638 (Version 1)
Quarter: 2017Q2

REPORT INFORMATION
  Report Type: Spontaneous
  Country: FR (occurrence: FR)
  Receive Date: 20170526
  Receipt Date: 20170526
  Transmission Date: 20170830
  Serious: Yes (Hospitalization)
  Sender: FDA-Public Use
  Company Number: FR-ALLERGAN-1721922US

PATIENT
  Age: 62 Year
  Sex: Male

DRUGS (3)
  1. CEFTAROLINE FOSAMIL - BP [Suspect]
     Active Substance: CEFTAROLINE FOSAMIL
     Dosage: UNK
     Route: 042
     Dates: start: 20170314, end: 20170411
  2. FLAGYL [Suspect]
     Active Substance: METRONIDAZOLE\METRONIDAZOLE HYDROCHLORIDE
     Indication: LOCALISED INFECTION
     Dosage: 1.5 G, QD
     Route: 048
  3. CEFTAROLINE FOSAMIL - BP [Suspect]
     Active Substance: CEFTAROLINE FOSAMIL
     Indication: LOCALISED INFECTION
     Dosage: UNK
     Route: 042
     Dates: start: 20170411, end: 20170414

REACTIONS (1)
  - Hepatitis cholestatic [Recovering/Resolving]

NARRATIVE: CASE EVENT DATE: 201704
